FAERS Safety Report 21724993 (Version 2)
Quarter: 2023Q1

REPORT INFORMATION
  Report Type: Spontaneous
  Country: MY (occurrence: MY)
  Receive Date: 20221214
  Receipt Date: 20230119
  Transmission Date: 20230418
  Serious: No
  Sender: FDA-Public Use
  Company Number: MY-SA-SAC20221212000380

PATIENT
  Age: 38 Year
  Sex: Female
  Weight: 122 kg

DRUGS (5)
  1. ARAVA [Suspect]
     Active Substance: LEFLUNOMIDE
     Dosage: UNK
     Route: 065
  2. LEFLUNOMIDE [Concomitant]
     Active Substance: LEFLUNOMIDE
     Indication: Rheumatoid arthritis
     Dosage: 20 MG, QD
     Route: 048
     Dates: start: 20201218, end: 20221208
  3. SULFASALAZINE DELAYED-RELEASE [Concomitant]
     Active Substance: SULFASALAZINE
     Indication: Rheumatoid arthritis
     Dosage: 1 G, BID
     Route: 048
     Dates: start: 20210119
  4. CALCIUM LACTATE [Concomitant]
     Active Substance: CALCIUM LACTATE
     Indication: Supplementation therapy
     Dosage: 300 MG, QD
     Route: 048
     Dates: start: 20201218
  5. VITAMIN D NOS [Concomitant]
     Active Substance: VITAMIN D NOS
     Indication: Supplementation therapy
     Dosage: 2000 U, QOW
     Dates: start: 20210119

REACTIONS (1)
  - Exposure during pregnancy [Unknown]
